FAERS Safety Report 12434965 (Version 1)
Quarter: 2016Q2

REPORT INFORMATION
  Report Type: Spontaneous
  Country: US (occurrence: US)
  Receive Date: 20160603
  Receipt Date: 20160603
  Transmission Date: 20160815
  Serious: Yes (Other)
  Sender: FDA-Public Use
  Company Number: US-ROCHE-1696988

PATIENT
  Age: 60 Year
  Sex: Female

DRUGS (4)
  1. KLONOPIN [Suspect]
     Active Substance: CLONAZEPAM
     Indication: ANXIETY
     Dosage: 1 TO 2 TABLETS A DAY, 1/1-1 TABLET
     Route: 048
  2. ATARAX [Concomitant]
     Active Substance: HYDROXYZINE\HYDROXYZINE HYDROCHLORIDE
     Route: 065
  3. REMERON [Suspect]
     Active Substance: MIRTAZAPINE
     Indication: DEPRESSION
     Dosage: AT NIGHT
     Route: 065
  4. KLONOPIN [Suspect]
     Active Substance: CLONAZEPAM
     Dosage: HALF TO 1 TABLET
     Route: 048

REACTIONS (16)
  - Sneezing [Unknown]
  - Weight decreased [Unknown]
  - Mania [Unknown]
  - Pruritus [Recovered/Resolved]
  - Rash erythematous [Unknown]
  - Drug dose omission [Unknown]
  - Discomfort [Unknown]
  - Anxiety [Unknown]
  - Panic attack [Unknown]
  - Fatigue [Unknown]
  - Insomnia [Unknown]
  - Depression [Unknown]
  - Hypersensitivity [Recovered/Resolved]
  - Restlessness [Unknown]
  - Impulsive behaviour [Unknown]
  - Malaise [Unknown]
